FAERS Safety Report 7949222-3 (Version None)
Quarter: 2011Q4

REPORT INFORMATION
  Report Type: 
  Country: None (occurrence: None)
  Receive Date: 20111125
  Receipt Date: 20111121
  Transmission Date: 20120403
  Serious: Yes (Other)
  Sender: FDA-Public Use
  Company Number: AUR-APL-2011-05891

PATIENT
  Age: 42 Year
  Sex: Male
  Weight: 77.1115 kg

DRUGS (1)
  1. ZOLPIDEM [Suspect]
     Indication: INSOMNIA
     Dosage: (5 MG,AS REQUIRED),ORAL
     Route: 048
     Dates: start: 20110901, end: 20111118

REACTIONS (1)
  - ALOPECIA [None]
